FAERS Safety Report 10843931 (Version 1)
Quarter: 2015Q1

REPORT INFORMATION
  Report Type: Report from Study
  Country: US (occurrence: US)
  Receive Date: 20150220
  Receipt Date: 20150220
  Transmission Date: 20150721
  Serious: No
  Sender: FDA-Public Use
  Company Number: US-ABBVIE-14P-163-1283813-00

PATIENT
  Age: 48 Year
  Sex: Female

DRUGS (3)
  1. EXCEDRIN [Suspect]
     Active Substance: ACETAMINOPHEN\ASPIRIN\CAFFEINE
     Indication: SINUS HEADACHE
     Dates: start: 20140907
  2. HUMIRA [Suspect]
     Active Substance: ADALIMUMAB
     Indication: RHEUMATOID ARTHRITIS
     Dates: start: 20140901
  3. PREMARIN [Concomitant]
     Active Substance: ESTROGENS, CONJUGATED
     Indication: PRODUCT USED FOR UNKNOWN INDICATION

REACTIONS (7)
  - Nausea [Unknown]
  - Sinus headache [Not Recovered/Not Resolved]
  - Injection site pruritus [Recovering/Resolving]
  - Injection site warmth [Unknown]
  - Injection site swelling [Unknown]
  - Injection site erythema [Recovering/Resolving]
  - Drug ineffective [Unknown]

NARRATIVE: CASE EVENT DATE: 20140907
